FAERS Safety Report 23612034 (Version 1)
Quarter: 2024Q1

REPORT INFORMATION
  Report Type: Spontaneous
  Country: HR (occurrence: None)
  Receive Date: 20240308
  Receipt Date: 20240308
  Transmission Date: 20240410
  Serious: Yes (Death)
  Sender: FDA-Public Use
  Company Number: 2024A057225

PATIENT
  Age: 67 Year
  Sex: Female

DRUGS (3)
  1. ONDEXXYA [Suspect]
     Active Substance: ANDEXANET ALFA
     Indication: Procoagulant therapy
     Route: 042
  2. WARFARIN [Suspect]
     Active Substance: WARFARIN
  3. RIVAROKSABAN [Concomitant]

REACTIONS (1)
  - Death [Fatal]
